FAERS Safety Report 5394241-7 (Version None)
Quarter: 2007Q3

REPORT INFORMATION
  Report Type: 
  Country: None (occurrence: None)
  Receive Date: 20070723
  Receipt Date: 20070511
  Transmission Date: 20080115
  Serious: No
  Sender: FDA-Public Use
  Company Number: A0651035A

PATIENT
  Age: 64 Year
  Sex: Female

DRUGS (3)
  1. AVANDIA [Suspect]
     Dosage: 4MG PER DAY
     Route: 048
     Dates: start: 20070429
  2. LEVOTHYROXINE SODIUM [Concomitant]
  3. LOVASTATIN [Concomitant]

REACTIONS (4)
  - ERYTHEMA [None]
  - LOCAL SWELLING [None]
  - PRURITUS [None]
  - SWELLING [None]
